FAERS Safety Report 9292994 (Version 5)
Quarter: 2015Q1

REPORT INFORMATION
  Report Type: Spontaneous
  Country: US (occurrence: None)
  Receive Date: 20130513
  Receipt Date: 20150120
  Transmission Date: 20150721
  Serious: Yes (Hospitalization, Other)
  Sender: FDA-Public Use
  Company Number: 2013-000345

PATIENT
  Age: 65 Year
  Sex: Female
  Weight: 53.5 kg

DRUGS (14)
  1. FOSAMAX [Suspect]
     Active Substance: ALENDRONATE SODIUM
     Indication: OSTEOPOROSIS
     Route: 048
     Dates: start: 20010905, end: 200510
  2. FOSAMAX [Suspect]
     Active Substance: ALENDRONATE SODIUM
     Indication: OSTEOPOROSIS PROPHYLAXIS
     Route: 048
     Dates: start: 20010905, end: 200510
  3. FOSAMAX [Suspect]
     Active Substance: ALENDRONATE SODIUM
     Indication: OSTEOPENIA
     Route: 048
     Dates: start: 20010905, end: 200510
  4. DIOVAN [Concomitant]
     Active Substance: VALSARTAN
  5. LOVASTATIN. [Concomitant]
     Active Substance: LOVASTATIN
  6. ACTONEL [Suspect]
     Active Substance: RISEDRONATE SODIUM
     Indication: OSTEOPENIA
     Dates: start: 20040204
  7. ASPIRIN (ACETYLSALICYLIC ACID) [Concomitant]
     Active Substance: ASPIRIN
  8. BONIVA [Suspect]
     Active Substance: IBANDRONATE SODIUM
     Indication: OSTEOPENIA
     Route: 048
     Dates: start: 200902
  9. TOPROL (METOPROLOL SUCCINATE) [Concomitant]
  10. PRAVASTATIN [Concomitant]
     Active Substance: PRAVASTATIN\PRAVASTATIN SODIUM
  11. WELLBUTRIN [Concomitant]
     Active Substance: BUPROPION HYDROCHLORIDE
  12. PLAVIX (CLOPIDOGREL BISULFATE) [Concomitant]
  13. ACTONEL [Suspect]
     Active Substance: RISEDRONATE SODIUM
     Indication: OSTEOPENIA
     Route: 048
     Dates: start: 20090128, end: 200902
  14. CALAN/00014302/ (VERAPAMIL HYDROCHLORIDE) [Concomitant]

REACTIONS (9)
  - Fracture displacement [None]
  - Stress fracture [None]
  - Atypical femur fracture [None]
  - Low turnover osteopathy [None]
  - Economic problem [None]
  - Fall [None]
  - Bone disorder [None]
  - Arthralgia [None]
  - Osteogenesis imperfecta [None]

NARRATIVE: CASE EVENT DATE: 201009
